FAERS Safety Report 5619535-9 (Version None)
Quarter: 2008Q1

REPORT INFORMATION
  Report Type: 
  Country: None (occurrence: None)
  Receive Date: 20080205
  Receipt Date: 20080205
  Transmission Date: 20080703
  Serious: Yes (Hospitalization)
  Sender: FDA-Public Use
  Company Number: None

PATIENT
  Sex: Male
  Weight: 99.7 kg

DRUGS (3)
  1. CASODEX [Suspect]
     Dosage: 1050 MG DAYS 1-21, CYCLE 3
  2. TAXOTERE [Suspect]
     Dosage: 160 MG DAY 1, CYCLE 3
  3. ZOLADEX [Suspect]
     Dosage: 4 MG DAY 1, CYCLE 3

REACTIONS (4)
  - DEEP VEIN THROMBOSIS [None]
  - HAEMOGLOBIN DECREASED [None]
  - PULMONARY EMBOLISM [None]
  - WHITE BLOOD CELL COUNT INCREASED [None]
